FAERS Safety Report 8236320-2 (Version None)
Quarter: 2012Q1

REPORT INFORMATION
  Report Type: 
  Country: None (occurrence: None)
  Receive Date: 20120327
  Receipt Date: 20120319
  Transmission Date: 20120608
  Serious: Yes (Other)
  Sender: FDA-Public Use
  Company Number: US-JNJFOC-20120309321

PATIENT
  Sex: Female
  Weight: 50.35 kg

DRUGS (2)
  1. SIMPONI [Suspect]
     Indication: RHEUMATOID ARTHRITIS
     Route: 058
     Dates: start: 20100901
  2. SIMPONI [Suspect]
     Route: 058
     Dates: start: 20120208

REACTIONS (6)
  - RHEUMATOID ARTHRITIS [None]
  - GRAND MAL CONVULSION [None]
  - MENINGITIS [None]
  - PNEUMONIA [None]
  - CEREBROVASCULAR ACCIDENT [None]
  - DRUG INEFFECTIVE [None]
